FAERS Safety Report 6306936-9 (Version None)
Quarter: 2009Q3

REPORT INFORMATION
  Report Type: 
  Country: None (occurrence: None)
  Receive Date: 20090810
  Receipt Date: 20090724
  Transmission Date: 20100115
  Serious: Yes (Hospitalization)
  Sender: FDA-Public Use
  Company Number: F03200900083

PATIENT
  Age: 56 Year
  Sex: Male

DRUGS (5)
  1. FLUDARABINE PHOSPHATE [Suspect]
     Indication: CHRONIC LYMPHOCYTIC LEUKAEMIA
     Dosage: 40 MG/M2 QD, ORAL
     Route: 048
     Dates: start: 20090528, end: 20090530
  2. (ALEMTUZUMAB) - UNKNOWN - 30 MG [Suspect]
     Indication: CHRONIC LYMPHOCYTIC LEUKAEMIA
     Dosage: 30 MG QD SUBCUTANEOUS
     Route: 058
     Dates: start: 20090526
  3. CO-TRIMOXAZOL (TRIMETHOPRIM AND SULFAMETHOXAZOLE) [Concomitant]
  4. VALACYCLOVIR [Concomitant]
  5. FLUCONAZOLE [Concomitant]

REACTIONS (1)
  - VASCULITIS [None]
